FAERS Safety Report 25849557 (Version 1)
Quarter: 2025Q3

REPORT INFORMATION
  Report Type: Spontaneous
  Country: EU (occurrence: EU)
  Receive Date: 20250926
  Receipt Date: 20250926
  Transmission Date: 20251020
  Serious: Yes (Death, Hospitalization, Other)
  Sender: ABBVIE
  Company Number: EU-ABBVIE-6472649

PATIENT
  Age: 80 Year
  Sex: Male
  Weight: 80 kg

DRUGS (29)
  1. DEPAKOTE [Suspect]
     Active Substance: DIVALPROEX SODIUM
     Indication: Product used for unknown indication
     Route: 048
     Dates: start: 20201127, end: 20201201
  2. DEPAKOTE [Suspect]
     Active Substance: DIVALPROEX SODIUM
     Indication: Product used for unknown indication
     Route: 048
     Dates: start: 20201202
  3. Hydrochlorthiazide sar [Concomitant]
     Indication: Product used for unknown indication
  4. ATORVASTATIN [Concomitant]
     Active Substance: ATORVASTATIN
     Indication: Product used for unknown indication
  5. BISOPROLOL [Concomitant]
     Active Substance: BISOPROLOL
     Indication: Product used for unknown indication
  6. TIAPRIDE HYDROCHLORIDE [Suspect]
     Active Substance: TIAPRIDE HYDROCHLORIDE
     Indication: Mania
     Route: 065
  7. TIAPRIDE HYDROCHLORIDE [Suspect]
     Active Substance: TIAPRIDE HYDROCHLORIDE
     Indication: Mania
     Route: 065
  8. ASPIRIN [Suspect]
     Active Substance: ASPIRIN
     Indication: Product used for unknown indication
     Route: 065
     Dates: start: 20201116
  9. Cacit [Concomitant]
     Indication: Product used for unknown indication
  10. CHOLECALCIFEROL [Concomitant]
     Active Substance: CHOLECALCIFEROL
     Indication: Product used for unknown indication
  11. LANSOPRAZOLE [Concomitant]
     Active Substance: LANSOPRAZOLE
     Indication: Product used for unknown indication
  12. DOLIPRANE [Concomitant]
     Active Substance: ACETAMINOPHEN
     Indication: Product used for unknown indication
  13. NIVOLUMAB [Concomitant]
     Active Substance: NIVOLUMAB
     Indication: Product used for unknown indication
     Dates: start: 20200727
  14. PREDNISONE [Concomitant]
     Active Substance: PREDNISONE
     Indication: Product used for unknown indication
  15. FUROSEMIDE [Concomitant]
     Active Substance: FUROSEMIDE
     Indication: Product used for unknown indication
  16. IRBESARTAN [Concomitant]
     Active Substance: IRBESARTAN
     Indication: Product used for unknown indication
  17. PREDNISOLONE SODIUM METAZOATE [Suspect]
     Active Substance: PREDNISOLONE SODIUM METAZOATE
     Indication: Malignant melanoma
     Dosage: LAST ADMIN DATE: 2020?[PREDNISOLONE METASULFOBENZOATE SODIUM]?(PREDNISOLONE METASULFOBENZOATESODIUM)
     Route: 048
     Dates: start: 20200828
  18. PREDNISOLONE SODIUM METAZOATE [Suspect]
     Active Substance: PREDNISOLONE SODIUM METAZOATE
     Indication: Malignant melanoma
     Dosage: LAST ADMIN DATE: SEP 2020
     Route: 048
     Dates: start: 20200918
  19. PREDNISOLONE SODIUM METAZOATE [Suspect]
     Active Substance: PREDNISOLONE SODIUM METAZOATE
     Indication: Malignant melanoma
     Dosage: LAST ADMIN DATE: SEP 2020
     Route: 048
     Dates: start: 20200923
  20. PREDNISOLONE SODIUM METAZOATE [Suspect]
     Active Substance: PREDNISOLONE SODIUM METAZOATE
     Indication: Malignant melanoma
     Dosage: LAST ADMIN DATE: SEP 2020
     Route: 048
     Dates: start: 20200930
  21. PREDNISOLONE SODIUM METAZOATE [Suspect]
     Active Substance: PREDNISOLONE SODIUM METAZOATE
     Indication: Malignant melanoma
     Dosage: LAST ADMIN DATE: 2020
     Route: 048
     Dates: start: 20201013
  22. PREDNISOLONE SODIUM METAZOATE [Suspect]
     Active Substance: PREDNISOLONE SODIUM METAZOATE
     Indication: Malignant melanoma
     Route: 048
  23. PREDNISOLONE SODIUM METAZOATE [Suspect]
     Active Substance: PREDNISOLONE SODIUM METAZOATE
     Indication: Malignant melanoma
     Route: 048
     Dates: start: 20201105
  24. OLANZAPINE [Suspect]
     Active Substance: OLANZAPINE
     Indication: Mania
     Route: 065
  25. SOLU-MEDROL [Suspect]
     Active Substance: METHYLPREDNISOLONE SODIUM SUCCINATE
     Indication: Malignant melanoma
     Route: 042
     Dates: start: 20200825, end: 20200827
  26. ORENCIA [Suspect]
     Active Substance: ABATACEPT
     Indication: Product used for unknown indication
     Route: 065
     Dates: start: 20200910
  27. ORENCIA [Suspect]
     Active Substance: ABATACEPT
     Indication: Product used for unknown indication
     Route: 065
     Dates: start: 20200916
  28. ORENCIA [Suspect]
     Active Substance: ABATACEPT
     Indication: Product used for unknown indication
     Route: 065
     Dates: start: 20200923
  29. INNOHEP [Suspect]
     Active Substance: TINZAPARIN SODIUM
     Indication: Anticoagulant therapy
     Route: 065

REACTIONS (8)
  - Fall [Unknown]
  - Atypical parkinsonism [Unknown]
  - Leukoencephalopathy [Unknown]
  - Hypermetabolism [Unknown]
  - Venous thrombosis [Unknown]
  - Mania [Fatal]
  - Slipping rib syndrome [Fatal]
  - Sarcopenia [Not Recovered/Not Resolved]

NARRATIVE: CASE EVENT DATE: 20200101
